FAERS Safety Report 7628739-5 (Version None)
Quarter: 2011Q3

REPORT INFORMATION
  Report Type: 
  Country: None (occurrence: None)
  Receive Date: 20110722
  Receipt Date: 20110715
  Transmission Date: 20111222
  Serious: Yes (Hospitalization)
  Sender: FDA-Public Use
  Company Number: US-JNJFOC-20110707384

PATIENT
  Age: 51 Year
  Sex: Female
  Weight: 88.45 kg

DRUGS (11)
  1. FENTANYL-100 [Suspect]
     Indication: NEURALGIA
     Route: 062
     Dates: start: 20110501
  2. FENTANYL-100 [Suspect]
     Indication: MULTIPLE SCLEROSIS
     Route: 062
     Dates: start: 20070101, end: 20070101
  3. WELLBUTRIN XL [Concomitant]
     Route: 048
     Dates: start: 20060101
  4. PROVIGIL [Concomitant]
     Indication: FATIGUE
     Route: 048
     Dates: start: 20060101
  5. FENTANYL-100 [Suspect]
     Route: 062
     Dates: start: 20070101, end: 20110501
  6. LYRICA [Concomitant]
     Indication: NEURALGIA
     Route: 048
     Dates: start: 20060101
  7. FENTANYL-100 [Suspect]
     Indication: NEURALGIA
     Route: 062
     Dates: start: 20070101, end: 20070101
  8. AMANTADINE HCL [Concomitant]
     Indication: FATIGUE
     Route: 048
     Dates: start: 20060101
  9. FENTANYL-100 [Suspect]
     Route: 062
     Dates: start: 20070101, end: 20110501
  10. FENTANYL-100 [Suspect]
     Indication: MULTIPLE SCLEROSIS
     Route: 062
     Dates: start: 20110501
  11. VALIUM [Concomitant]
     Indication: MUSCLE SPASMS
     Dosage: AS NEEDED
     Route: 048
     Dates: start: 20080101

REACTIONS (3)
  - DRUG EFFECT DECREASED [None]
  - HIP ARTHROPLASTY [None]
  - PRODUCT QUALITY ISSUE [None]
